FAERS Safety Report 5304789-9 (Version None)
Quarter: 2007Q2

REPORT INFORMATION
  Report Type: 
  Country: None (occurrence: None)
  Receive Date: 20070423
  Receipt Date: 20070409
  Transmission Date: 20071010
  Serious: Yes (Hospitalization)
  Sender: FDA-Public Use
  Company Number: US-ELI_LILLY_AND_COMPANY-US200703002429

PATIENT
  Sex: Female

DRUGS (1)
  1. PROZAC WEEKLY [Suspect]
     Dosage: 90 MG, WEEKLY (1/W)

REACTIONS (1)
  - SUBSTANCE ABUSE [None]
